FAERS Safety Report 22215512 (Version 1)
Quarter: 2023Q2

REPORT INFORMATION
  Report Type: Spontaneous
  Country: US (occurrence: US)
  Receive Date: 20230416
  Receipt Date: 20230416
  Transmission Date: 20230721
  Serious: No
  Sender: FDA-Public Use
  Company Number: US-JNJFOC-20190700254

PATIENT

DRUGS (1)
  1. CHILDRENS ZYRTEC ALLERGY [Suspect]
     Active Substance: CETIRIZINE HYDROCHLORIDE
     Indication: Seasonal allergy
     Dosage: THEY CAN BE CUT IN HALF, WHICH I DID TO ACHIEVE THE 1/2 STRENGTH.
     Route: 065

REACTIONS (1)
  - Wrong technique in product usage process [Unknown]
